FAERS Safety Report 6375873-6 (Version None)
Quarter: 2009Q3

REPORT INFORMATION
  Report Type: 
  Country: None (occurrence: None)
  Receive Date: 20090924
  Receipt Date: 20090916
  Transmission Date: 20100115
  Serious: Yes (Death)
  Sender: FDA-Public Use
  Company Number: PH-BAXTER-2009BH014355

PATIENT
  Age: 74 Year
  Sex: Female
  Weight: 72 kg

DRUGS (2)
  1. DIANEAL [Suspect]
     Indication: RENAL FAILURE
     Route: 033
     Dates: start: 20090619, end: 20090906
  2. DIANEAL [Suspect]
     Route: 033
     Dates: start: 20090619, end: 20090906

REACTIONS (1)
  - CERVIX CANCER METASTATIC [None]
